FAERS Safety Report 7352414 (Version 3)
Quarter: 2014Q2

REPORT INFORMATION
  Report Type: Spontaneous
  Country: US (occurrence: US)
  Receive Date: 20100412
  Receipt Date: 20140422
  Transmission Date: 20141212
  Serious: Yes (Other)
  Sender: FDA-Public Use
  Company Number: US-ALEXION-A201000356

PATIENT
  Age: 63 Year
  Sex: Female

DRUGS (8)
  1. SOLIRIS 300MG [Suspect]
     Indication: PAROXYSMAL NOCTURNAL HAEMOGLOBINURIA
     Dosage: 600 MG, UNK
     Route: 042
     Dates: start: 20100324
  2. TYLENOL                            /00020001/ [Concomitant]
     Indication: PREMEDICATION
     Dosage: 325 MG, UNK
     Dates: start: 20100324
  3. BENADRYL                           /00000402/ [Concomitant]
     Indication: PREMEDICATION
     Dosage: UNK
     Dates: start: 20100324
  4. FOLIC ACID [Concomitant]
     Dosage: UNK
     Route: 048
  5. PROTONIX                           /01263201/ [Concomitant]
     Dosage: UNK
     Route: 048
  6. SYNTHROID [Concomitant]
     Dosage: UNK
     Route: 048
  7. SINGULAIR                          /01362601/ [Concomitant]
     Dosage: UNK
     Route: 048
  8. MULTIVITAMIN                       /00831701/ [Concomitant]
     Dosage: UNK
     Route: 048

REACTIONS (4)
  - Headache [Recovered/Resolved]
  - Paranasal sinus discomfort [Not Recovered/Not Resolved]
  - Rhinorrhoea [Not Recovered/Not Resolved]
  - Sinusitis [Recovered/Resolved]
